FAERS Safety Report 6006792-2 (Version None)
Quarter: 2008Q4

REPORT INFORMATION
  Report Type: 
  Country: None (occurrence: None)
  Receive Date: 20081217
  Receipt Date: 20081212
  Transmission Date: 20090506
  Serious: Yes (Hospitalization)
  Sender: FDA-Public Use
  Company Number: FR-ASTRAZENECA-2008CG01842

PATIENT
  Age: 80 Year
  Sex: Male

DRUGS (5)
  1. CRESTOR [Suspect]
     Indication: HYPERCHOLESTEROLAEMIA
     Route: 048
     Dates: start: 20050801, end: 20081206
  2. BI-PROFENID [Suspect]
  3. PLAVIX [Concomitant]
     Indication: CORONARY ARTERY DISEASE
  4. KARDEGIC [Concomitant]
     Indication: CORONARY ARTERY DISEASE
  5. UNSPECIFIED ANTICOAGULANT [Concomitant]

REACTIONS (2)
  - MUSCLE INJURY [None]
  - TENDONITIS [None]
